FAERS Safety Report 4598712-2 (Version None)
Quarter: 2005Q1

REPORT INFORMATION
  Report Type: 
  Country: None (occurrence: None)
  Receive Date: 20050304
  Receipt Date: 20050223
  Transmission Date: 20050727
  Serious: Yes (Other)
  Sender: FDA-Public Use
  Company Number: PHNU2005DE01069

PATIENT
  Sex: Female

DRUGS (3)
  1. ESIDRIX [Suspect]
     Indication: HYPERTENSION
     Dosage: 0.5 DF, QD
     Route: 048
     Dates: start: 20041101
  2. CEPHALEXIN [Suspect]
     Dates: start: 20050221, end: 20050222
  3. NEBILET [Concomitant]
     Dosage: 0.25 DF, QD
     Dates: start: 20041101

REACTIONS (7)
  - ABSCESS [None]
  - BLOOD PRESSURE INCREASED [None]
  - DIARRHOEA [None]
  - DRUG INTERACTION [None]
  - RASH [None]
  - SKIN BURNING SENSATION [None]
  - TACHYCARDIA [None]
